FAERS Safety Report 24999587 (Version 1)
Quarter: 2025Q1

REPORT INFORMATION
  Report Type: Spontaneous
  Country: US (occurrence: US)
  Receive Date: 20250222
  Receipt Date: 20250222
  Transmission Date: 20250409
  Serious: Yes (Hospitalization)
  Sender: SANOFI AVENTIS
  Company Number: US-SANOFI-02412709

PATIENT
  Sex: Male

DRUGS (4)
  1. LANTUS SOLOSTAR [Suspect]
     Active Substance: INSULIN GLARGINE
     Indication: Diabetes mellitus
     Dosage: 110 IU, QD, DRUG TREATMENT DURATION: 30 YEARS
     Route: 065
  2. LANTUS [Suspect]
     Active Substance: INSULIN GLARGINE
     Indication: Diabetes mellitus
  3. TRESIBA [Suspect]
     Active Substance: INSULIN DEGLUDEC
  4. BYETTA [Suspect]
     Active Substance: EXENATIDE

REACTIONS (5)
  - Hospitalisation [Unknown]
  - Overweight [Unknown]
  - Blood glucose abnormal [Unknown]
  - Product prescribing error [Unknown]
  - Product dispensing issue [Unknown]
